FAERS Safety Report 5652606-X (Version None)
Quarter: 2008Q1

REPORT INFORMATION
  Report Type: 
  Country: None (occurrence: None)
  Receive Date: 20080305
  Receipt Date: 20080305
  Transmission Date: 20080703
  Serious: Yes (Hospitalization)
  Sender: FDA-Public Use
  Company Number: None

PATIENT
  Age: 5 Year
  Sex: Female
  Weight: 20.4119 kg

DRUGS (3)
  1. OMNICEF [Suspect]
     Indication: INFECTION PROPHYLAXIS
     Dosage: 1 TSP 2X DAY PO
     Route: 048
     Dates: start: 20050820, end: 20050825
  2. OMNICEF [Suspect]
     Indication: RESPIRATORY TRACT INFECTION
     Dosage: 1 TSP 2X DAY PO
     Route: 048
     Dates: start: 20050820, end: 20050825
  3. BACTRIM [Suspect]
     Indication: VESICOURETERIC REFLUX
     Dosage: 1 TSP 1X DAY PO
     Route: 048
     Dates: start: 20020930, end: 20050820

REACTIONS (2)
  - DEHYDRATION [None]
  - STEVENS-JOHNSON SYNDROME [None]
